APPROVED DRUG PRODUCT: PRAVASTATIN SODIUM
Active Ingredient: PRAVASTATIN SODIUM
Strength: 20MG
Dosage Form/Route: TABLET;ORAL
Application: A077917 | Product #002 | TE Code: AB
Applicant: CHARTWELL RX SCIENCES LLC
Approved: Jan 8, 2008 | RLD: No | RS: No | Type: RX